FAERS Safety Report 22654862 (Version 1)
Quarter: 2023Q2

REPORT INFORMATION
  Report Type: Report from Study
  Country: US (occurrence: US)
  Receive Date: 20230629
  Receipt Date: 20230629
  Transmission Date: 20230722
  Serious: Yes (Other)
  Sender: FDA-Public Use
  Company Number: US-ARGENX-2023-ARGX-US000709AA

PATIENT

DRUGS (4)
  1. VYVGART [Suspect]
     Active Substance: EFGARTIGIMOD ALFA-FCAB
     Indication: Myasthenia gravis
     Dosage: 1200 MG, 1/WEEK
     Route: 042
     Dates: start: 20230224
  2. VYVGART [Suspect]
     Active Substance: EFGARTIGIMOD ALFA-FCAB
     Dosage: 10 MG/KG
     Route: 042
     Dates: start: 20230317
  3. IRON [Concomitant]
     Active Substance: IRON
     Indication: Product used for unknown indication
  4. B12 1000 SR [Concomitant]
     Indication: Product used for unknown indication

REACTIONS (16)
  - Nephrolithiasis [Not Recovered/Not Resolved]
  - Blepharospasm [Unknown]
  - Throat irritation [Unknown]
  - Malaise [Unknown]
  - Pain [Unknown]
  - Arthralgia [Unknown]
  - Hypersomnia [Unknown]
  - Influenza like illness [Unknown]
  - Asthenia [Unknown]
  - Influenza [Unknown]
  - Therapeutic product effect decreased [Unknown]
  - Myasthenia gravis [Unknown]
  - Depression [Unknown]
  - Fatigue [Unknown]
  - Anaemia [Unknown]
  - Urine analysis abnormal [Unknown]
